FAERS Safety Report 16863017 (Version 1)
Quarter: 2019Q3

REPORT INFORMATION
  Report Type: Spontaneous
  Country: US (occurrence: US)
  Receive Date: 20190927
  Receipt Date: 20190927
  Transmission Date: 20191005
  Serious: Yes (Hospitalization, Other)
  Sender: FDA-Public Use
  Company Number: US-MYLANLABS-2019M1088624

PATIENT
  Age: 54 Year
  Sex: Female

DRUGS (10)
  1. CYTARABINE. [Suspect]
     Active Substance: CYTARABINE
     Indication: BONE MARROW CONDITIONING REGIMEN
     Dosage: BEAM CHEMOTHERAPY; HIGH-DOSE CONDITIONING
     Route: 065
  2. DOXORUBICIN [Suspect]
     Active Substance: DOXORUBICIN
     Indication: PERIPHERAL T-CELL LYMPHOMA UNSPECIFIED
     Dosage: CHOP REGIMEN; 6 CYCLES ADMINISTERED
     Route: 065
  3. MELPHALAN. [Suspect]
     Active Substance: MELPHALAN
     Indication: BONE MARROW CONDITIONING REGIMEN
     Dosage: BEAM CHEMOTHERAPY; HIGH-DOSE CONDITIONING
     Route: 065
  4. PREDNISONE. [Suspect]
     Active Substance: PREDNISONE
     Indication: PERIPHERAL T-CELL LYMPHOMA UNSPECIFIED
     Dosage: CHOP REGIMEN; 6 CYCLES ADMINISTERED
     Route: 065
  5. VINCRISTINE [Suspect]
     Active Substance: VINCRISTINE
     Indication: PERIPHERAL T-CELL LYMPHOMA UNSPECIFIED
     Dosage: CHOP REGIMEN; 6 CYCLES ADMINISTERED
     Route: 065
  6. DIFLUPREDNATE [Suspect]
     Active Substance: DIFLUPREDNATE
     Indication: IMMUNE RECOVERY UVEITIS
     Dosage: APPLIED FOUR TIMES DAILY
     Route: 061
  7. CARMUSTINE. [Suspect]
     Active Substance: CARMUSTINE
     Indication: BONE MARROW CONDITIONING REGIMEN
     Dosage: BEAM CHEMOTHERAPY; HIGH-DOSE CONDITIONING
     Route: 065
  8. CYCLOPHOSPHAMIDE. [Suspect]
     Active Substance: CYCLOPHOSPHAMIDE
     Indication: PERIPHERAL T-CELL LYMPHOMA UNSPECIFIED
     Dosage: CHOP REGIMEN; 6 CYCLES ADMINISTERED. ALSO ADMINISTERED AS PRIMING PRIOR TO THE TRANSPLANT
     Route: 065
  9. PREDNISONE. [Suspect]
     Active Substance: PREDNISONE
     Indication: IMMUNE RECOVERY UVEITIS
     Route: 048
  10. ETOPOSIDE. [Suspect]
     Active Substance: ETOPOSIDE
     Indication: BONE MARROW CONDITIONING REGIMEN
     Dosage: BEAM CHEMOTHERAPY; HIGH-DOSE CONDITIONING
     Route: 065

REACTIONS (7)
  - Fusobacterium infection [Recovering/Resolving]
  - Chorioretinal scar [Unknown]
  - Cytomegalovirus chorioretinitis [Recovered/Resolved with Sequelae]
  - Drug ineffective [Unknown]
  - Bacteraemia [Recovering/Resolving]
  - Pneumonia bacterial [Recovering/Resolving]
  - Retinal haemorrhage [Recovered/Resolved]
